FAERS Safety Report 11525344 (Version 1)
Quarter: 2015Q3

REPORT INFORMATION
  Report Type: Spontaneous
  Country: US (occurrence: US)
  Receive Date: 20150918
  Receipt Date: 20150918
  Transmission Date: 20151125
  Serious: No
  Sender: FDA-Public Use
  Company Number: US-MIKART, INC.-1042106

PATIENT
  Age: 60 Year
  Sex: Female

DRUGS (14)
  1. BUTALBITAL, ACETAMINOPHEN, AND CAFFEINE [Suspect]
     Active Substance: ACETAMINOPHEN\BUTALBITAL\CAFFEINE
     Indication: HEADACHE
     Route: 048
  2. SYNTHROID [Concomitant]
     Active Substance: LEVOTHYROXINE SODIUM
  3. ATORVASTATIN CALCIUM. [Concomitant]
     Active Substance: ATORVASTATIN CALCIUM
  4. VITAMIN D3DIETARY SUPPLEMEN DIETARY SUPPLEMENT [Concomitant]
     Active Substance: ALPHA-TOCOPHEROL\CHOLECALCIFEROL
  5. COPPER [Concomitant]
     Active Substance: COPPER
  6. GLUTATHIONE [Concomitant]
     Active Substance: GLUTATHIONE
  7. DIGESTIVE ENZYMES [Concomitant]
     Active Substance: UNSPECIFIED INGREDIENT
  8. IMMUNE SYSTEM BOOSTER [Concomitant]
  9. ADVIL [Concomitant]
     Active Substance: IBUPROFEN
  10. BYSTOLIC [Concomitant]
     Active Substance: NEBIVOLOL HYDROCHLORIDE
  11. PROBIOTIC [Concomitant]
     Active Substance: PROBIOTICS NOS
  12. VERAPAMIL [Concomitant]
     Active Substance: VERAPAMIL HYDROCHLORIDE
  13. NEXIUM [Concomitant]
     Active Substance: ESOMEPRAZOLE MAGNESIUM
  14. KRILL OIL [Concomitant]
     Active Substance: DIETARY SUPPLEMENT

REACTIONS (3)
  - Drug ineffective [Recovered/Resolved]
  - Agitation [Recovered/Resolved]
  - Nausea [Recovered/Resolved]
